FAERS Safety Report 5700682-8 (Version None)
Quarter: 2008Q2

REPORT INFORMATION
  Report Type: 
  Country: None (occurrence: None)
  Receive Date: 20080410
  Receipt Date: 20080408
  Transmission Date: 20081010
  Serious: Yes (Death, Hospitalization)
  Sender: FDA-Public Use
  Company Number: US-MERCK-0804USA01810

PATIENT
  Age: 74 Year
  Sex: Male

DRUGS (1)
  1. DECADRON [Suspect]
     Route: 048

REACTIONS (9)
  - ACIDOSIS [None]
  - ACUTE MYOCARDIAL INFARCTION [None]
  - ACUTE RESPIRATORY DISTRESS SYNDROME [None]
  - HAEMOGLOBIN ABNORMAL [None]
  - HYPONATRAEMIA [None]
  - PNEUMOCYSTIS JIROVECI PNEUMONIA [None]
  - PNEUMONIA CYTOMEGALOVIRAL [None]
  - PNEUMONITIS [None]
  - RENAL FAILURE [None]
